FAERS Safety Report 15431537 (Version 2)
Quarter: 2018Q4

REPORT INFORMATION
  Report Type: Report from Study
  Country: US (occurrence: US)
  Receive Date: 20180926
  Receipt Date: 20181019
  Transmission Date: 20190204
  Serious: No
  Sender: FDA-Public Use
  Company Number: US-SA-2018SA266322

PATIENT
  Sex: Female

DRUGS (3)
  1. BRILINTA [Suspect]
     Active Substance: TICAGRELOR
  2. ALIROCUMAB PREFILLED PEN [Suspect]
     Active Substance: ALIROCUMAB
  3. ALIROCUMAB [Suspect]
     Active Substance: ALIROCUMAB
     Route: 058

REACTIONS (2)
  - Product storage error [Unknown]
  - Diarrhoea [Not Recovered/Not Resolved]
